FAERS Safety Report 20004631 (Version 1)
Quarter: 2021Q4

REPORT INFORMATION
  Report Type: Spontaneous
  Country: US (occurrence: US)
  Receive Date: 20211028
  Receipt Date: 20211028
  Transmission Date: 20220303
  Serious: Yes (Other)
  Sender: FDA-Public Use
  Company Number: US-SA-SAC20211022000855

PATIENT
  Age: 74 Year
  Sex: Female

DRUGS (1)
  1. ZANTAC [Suspect]
     Active Substance: RANITIDINE HYDROCHLORIDE
     Indication: Dyspepsia
     Dosage: UNK, FREQUENCY OTHER
     Dates: start: 198501, end: 200001

REACTIONS (3)
  - Colorectal cancer stage IV [Unknown]
  - Renal cancer stage IV [Recovering/Resolving]
  - Colon cancer stage IV [Recovering/Resolving]

NARRATIVE: CASE EVENT DATE: 20120101
